FAERS Safety Report 8176522-7 (Version None)
Quarter: 2012Q1

REPORT INFORMATION
  Report Type: 
  Country: None (occurrence: None)
  Receive Date: 20120301
  Receipt Date: 20120216
  Transmission Date: 20120608
  Serious: Yes (Other)
  Sender: FDA-Public Use
  Company Number: IT-PFIZER INC-2012053745

PATIENT
  Age: 82 Year
  Sex: Male

DRUGS (4)
  1. RAMIPRIL [Suspect]
     Indication: CARDIAC DISORDER
     Dosage: 2.5 MG, DAILY
     Route: 048
     Dates: start: 20050101
  2. AVODART [Suspect]
     Indication: BENIGN PROSTATIC HYPERPLASIA
     Dosage: UNK
     Route: 065
     Dates: start: 20080101
  3. LASIX [Suspect]
     Indication: CARDIAC DISORDER
     Dosage: 25 MG, DAILY
     Route: 048
     Dates: start: 20050101
  4. MAGNESIUM HYDROXIDE TAB [Suspect]
     Indication: CARDIAC DISORDER
     Dosage: 0.5 UNITS, DAILY
     Route: 048
     Dates: start: 20050101

REACTIONS (2)
  - VISUAL ACUITY REDUCED [None]
  - PHOTOPHOBIA [None]
